FAERS Safety Report 24005381 (Version 1)
Quarter: 2024Q2

REPORT INFORMATION
  Report Type: Spontaneous
  Country: US (occurrence: None)
  Receive Date: 20240622
  Receipt Date: 20240622
  Transmission Date: 20240716
  Serious: Yes (Hospitalization)
  Sender: FDA-Public Use
  Company Number: None

PATIENT
  Sex: Male

DRUGS (11)
  1. ENBREL [Suspect]
     Active Substance: BENZYL ALCOHOL\ETANERCEPT
     Dates: start: 20170818
  2. AMLODIPINE [Concomitant]
     Active Substance: AMLODIPINE BESYLATE
  3. AMOXICILLIN [Concomitant]
     Active Substance: AMOXICILLIN
  4. BABY ASPIRIN CHW [Concomitant]
  5. EZETIMIBE [Concomitant]
     Active Substance: EZETIMIBE
  6. FOLIC ACID [Concomitant]
     Active Substance: FOLIC ACID
  7. FUROSEMIDE [Concomitant]
     Active Substance: FUROSEMIDE
  8. KLOR-CON M10 [Concomitant]
     Active Substance: POTASSIUM CHLORIDE
  9. LEFLUNOMIDE [Concomitant]
     Active Substance: LEFLUNOMIDE
  10. MAGNESIUM [Concomitant]
     Active Substance: MAGNESIUM
  11. METFORMIN [Concomitant]
     Active Substance: METFORMIN HYDROCHLORIDE

REACTIONS (2)
  - Chest pain [None]
  - Intentional dose omission [None]
